FAERS Safety Report 9963753 (Version 1)
Quarter: 2014Q1

REPORT INFORMATION
  Report Type: Spontaneous
  Country: US (occurrence: US)
  Receive Date: 20140305
  Receipt Date: 20140305
  Transmission Date: 20141002
  Serious: No
  Sender: FDA-Public Use
  Company Number: US-ABBVIE-13P-163-1118926-00

PATIENT
  Age: 30 Year
  Sex: Female

DRUGS (2)
  1. HUMIRA [Suspect]
     Indication: PSORIASIS
     Dates: start: 20120725, end: 20130501
  2. HYDROXYZINE [Concomitant]
     Indication: INSOMNIA

REACTIONS (1)
  - Liver function test abnormal [Not Recovered/Not Resolved]
